FAERS Safety Report 8010177-7 (Version None)
Quarter: 2011Q4

REPORT INFORMATION
  Report Type: 
  Country: None (occurrence: None)
  Receive Date: 20111228
  Receipt Date: 20111214
  Transmission Date: 20120403
  Serious: Yes (Hospitalization)
  Sender: FDA-Public Use
  Company Number: JP-PFIZER INC-2011310554

PATIENT
  Age: 68 Year
  Sex: Female

DRUGS (3)
  1. AMIODARONE HCL [Suspect]
     Indication: HYPERTROPHIC CARDIOMYOPATHY
     Dosage: 200 MG, 1X/DAY
     Route: 048
  2. FUROSEMIDE [Concomitant]
     Dosage: UNK
     Dates: start: 20110301
  3. SPIRONOLACTONE [Concomitant]
     Dosage: UNK

REACTIONS (2)
  - HEPATOTOXICITY [None]
  - DRUG LEVEL INCREASED [None]
